FAERS Safety Report 22305880 (Version 4)
Quarter: 2024Q4

REPORT INFORMATION
  Report Type: Spontaneous
  Country: PL (occurrence: PL)
  Receive Date: 20230511
  Receipt Date: 20241024
  Transmission Date: 20250114
  Serious: Yes (Hospitalization, Disabling, Other)
  Sender: AUROBINDO
  Company Number: PL-Orion Corporation ORION PHARMA-LENA2022-0003

PATIENT
  Age: 74 Year
  Sex: Female

DRUGS (7)
  1. CYCLOSPORINE [Suspect]
     Active Substance: CYCLOSPORINE
     Indication: Immunosuppressant drug therapy
     Dosage: UNK
     Route: 065
     Dates: start: 1992
  2. LENALIDOMIDE [Suspect]
     Active Substance: LENALIDOMIDE
     Indication: Immunosuppressant drug therapy
     Dosage: UNK
     Route: 065
     Dates: start: 2019, end: 202104
  3. LENALIDOMIDE [Suspect]
     Active Substance: LENALIDOMIDE
     Indication: Plasma cell myeloma
  4. AZATHIOPRINE [Suspect]
     Active Substance: AZATHIOPRINE
     Indication: Immunosuppressant drug therapy
     Dosage: UNK
     Route: 065
     Dates: start: 1992, end: 202104
  5. GRANULOCYTE COLONY-STIMULATING FACTOR NOS [Concomitant]
     Active Substance: GRANULOCYTE COLONY-STIMULATING FACTOR NOS
     Indication: Product used for unknown indication
     Dosage: UNK
     Route: 065
  6. ENTECAVIR [Concomitant]
     Active Substance: ENTECAVIR
     Indication: Hepatitis B
     Dosage: UNK
     Route: 065
  7. VALGANCICLOVIR [Concomitant]
     Active Substance: VALGANCICLOVIR
     Indication: Product used for unknown indication
     Dosage: UNK
     Route: 065

REACTIONS (8)
  - Necrotising retinitis [Not Recovered/Not Resolved]
  - Retinal vascular occlusion [Not Recovered/Not Resolved]
  - Retinal degeneration [Not Recovered/Not Resolved]
  - Optic nerve disorder [Not Recovered/Not Resolved]
  - Cytomegalovirus chorioretinitis [Recovered/Resolved]
  - Cytomegalovirus infection reactivation [Recovering/Resolving]
  - Vitritis infective [Recovering/Resolving]
  - Infection in an immunocompromised host [Recovered/Resolved]

NARRATIVE: CASE EVENT DATE: 20200701
